FAERS Safety Report 21966771 (Version 1)
Quarter: 2023Q1

REPORT INFORMATION
  Report Type: Spontaneous
  Country: US (occurrence: US)
  Receive Date: 20230208
  Receipt Date: 20230208
  Transmission Date: 20230417
  Serious: No
  Sender: FDA-Public Use
  Company Number: US-SANOFI-01478941

PATIENT
  Age: 70 Year
  Sex: Female

DRUGS (1)
  1. TOUJEO [Suspect]
     Active Substance: INSULIN GLARGINE
     Indication: Type 2 diabetes mellitus
     Dosage: 20 U,QD
     Dates: start: 2022

REACTIONS (4)
  - Illness [Unknown]
  - Vertigo [Unknown]
  - Tinnitus [Unknown]
  - Visual impairment [Unknown]

NARRATIVE: CASE EVENT DATE: 20230202
